FAERS Safety Report 13971196 (Version 1)
Quarter: 2017Q3

REPORT INFORMATION
  Report Type: Spontaneous
  Country: US (occurrence: US)
  Receive Date: 20170914
  Receipt Date: 20170914
  Transmission Date: 20171128
  Serious: No
  Sender: FDA-Public Use
  Company Number: US-ASTELLAS-2016US043134

PATIENT
  Sex: Male

DRUGS (1)
  1. XTANDI [Suspect]
     Active Substance: ENZALUTAMIDE
     Indication: METASTATIC SALIVARY GLAND CANCER
     Route: 048
     Dates: start: 201606

REACTIONS (7)
  - Dysphagia [Not Recovered/Not Resolved]
  - Off label use [Unknown]
  - Product quality issue [Unknown]
  - Throat irritation [Not Recovered/Not Resolved]
  - Fatigue [Unknown]
  - Underdose [Unknown]
  - Product size issue [Unknown]
